FAERS Safety Report 16682926 (Version 2)
Quarter: 2019Q3

REPORT INFORMATION
  Report Type: Spontaneous
  Country: GB (occurrence: GB)
  Receive Date: 20190808
  Receipt Date: 20190821
  Transmission Date: 20191004
  Serious: Yes (Hospitalization, Other)
  Sender: FDA-Public Use
  Company Number: PHHY2019GB178086

PATIENT
  Age: 78 Year
  Sex: Male

DRUGS (16)
  1. RITUXIMAB. [Suspect]
     Active Substance: RITUXIMAB
     Indication: EXTRANODAL MARGINAL ZONE B-CELL LYMPHOMA (MALT TYPE)
  2. PREDNISOLONE. [Suspect]
     Active Substance: PREDNISOLONE
     Indication: EXTRANODAL MARGINAL ZONE B-CELL LYMPHOMA (MALT TYPE)
  3. VINCRISTINE [Suspect]
     Active Substance: VINCRISTINE
     Indication: MARGINAL ZONE LYMPHOMA
     Dosage: UNK, CYCLIC
     Route: 065
  4. PREDNISOLONE. [Suspect]
     Active Substance: PREDNISOLONE
     Indication: MARGINAL ZONE LYMPHOMA
     Dosage: UNK, CYCLIC
     Route: 065
  5. CAELYX [Suspect]
     Active Substance: DOXORUBICIN HYDROCHLORIDE
     Indication: EXTRANODAL MARGINAL ZONE B-CELL LYMPHOMA (MALT TYPE)
  6. VINCRISTINE [Suspect]
     Active Substance: VINCRISTINE
     Indication: GASTROINTESTINAL LYMPHOMA
  7. RITUXIMAB. [Suspect]
     Active Substance: RITUXIMAB
     Indication: GASTROINTESTINAL LYMPHOMA
  8. CYCLOPHOSPHAMIDE. [Suspect]
     Active Substance: CYCLOPHOSPHAMIDE
     Indication: MARGINAL ZONE LYMPHOMA
     Dosage: UNK, CYCLIC
     Route: 065
  9. PREDNISOLONE. [Suspect]
     Active Substance: PREDNISOLONE
     Indication: GASTROINTESTINAL LYMPHOMA
  10. VINCRISTINE [Suspect]
     Active Substance: VINCRISTINE
     Indication: EXTRANODAL MARGINAL ZONE B-CELL LYMPHOMA (MALT TYPE)
  11. RITUXIMAB. [Suspect]
     Active Substance: RITUXIMAB
     Indication: MARGINAL ZONE LYMPHOMA
     Dosage: UNK, CYCLIC
     Route: 065
  12. CYCLOPHOSPHAMIDE. [Suspect]
     Active Substance: CYCLOPHOSPHAMIDE
     Indication: GASTROINTESTINAL LYMPHOMA
  13. CYCLOPHOSPHAMIDE. [Suspect]
     Active Substance: CYCLOPHOSPHAMIDE
     Indication: EXTRANODAL MARGINAL ZONE B-CELL LYMPHOMA (MALT TYPE)
  14. VINCRISTINE [Suspect]
     Active Substance: VINCRISTINE
     Indication: LYMPHOMA
  15. CAELYX [Suspect]
     Active Substance: DOXORUBICIN HYDROCHLORIDE
     Indication: MARGINAL ZONE LYMPHOMA
     Dosage: UNK, CYCLIC
     Route: 048
  16. CAELYX [Suspect]
     Active Substance: DOXORUBICIN HYDROCHLORIDE
     Indication: GASTROINTESTINAL LYMPHOMA

REACTIONS (6)
  - Off label use [Unknown]
  - Treatment failure [Unknown]
  - Product use in unapproved indication [Unknown]
  - Hepatitis E [Unknown]
  - Drug resistance [Unknown]
  - Autoimmune neutropenia [Unknown]
